FAERS Safety Report 15864438 (Version 7)
Quarter: 2019Q2

REPORT INFORMATION
  Report Type: Spontaneous
  Country: PL (occurrence: PL)
  Receive Date: 20190124
  Receipt Date: 20190417
  Transmission Date: 20190711
  Serious: Yes (Life-Threatening, Hospitalization, Other)
  Sender: FDA-Public Use
  Company Number: PHHY2019PL010895

PATIENT
  Age: 58 Year
  Sex: Male

DRUGS (2)
  1. METFORMIN [Suspect]
     Active Substance: METFORMIN HYDROCHLORIDE
     Indication: TYPE 2 DIABETES MELLITUS
     Dosage: 1 DF, BID
     Route: 065
  2. METFORMIN [Suspect]
     Active Substance: METFORMIN HYDROCHLORIDE
     Dosage: 60 DF, (SWALLOWED 60 TABLETS OF METFORMIN 850 MG)
     Route: 048

REACTIONS (20)
  - Intentional overdose [Recovered/Resolved]
  - Acute kidney injury [Recovered/Resolved]
  - Lactic acidosis [Recovered/Resolved]
  - Toxicity to various agents [Recovered/Resolved]
  - Tachypnoea [Unknown]
  - Depressed level of consciousness [Unknown]
  - Respiratory failure [Recovered/Resolved]
  - Circulatory collapse [Recovered/Resolved]
  - Hypotension [Unknown]
  - Blood creatinine increased [Unknown]
  - Suicide attempt [Recovered/Resolved]
  - Cardiopulmonary failure [Recovering/Resolving]
  - Anuria [Unknown]
  - Communication disorder [Recovered/Resolved]
  - Metabolic acidosis [Recovered/Resolved]
  - Cardiovascular insufficiency [Unknown]
  - Condition aggravated [Recovered/Resolved]
  - Cardiac failure [Unknown]
  - Atrial fibrillation [Recovered/Resolved]
  - Hypoglycaemia [Recovered/Resolved]
